FAERS Safety Report 9859852 (Version 1)
Quarter: 2014Q1

REPORT INFORMATION
  Report Type: Spontaneous
  Country: GB (occurrence: GB)
  Receive Date: 20140131
  Receipt Date: 20140131
  Transmission Date: 20141002
  Serious: Yes (Life-Threatening, Disabling, Other)
  Sender: FDA-Public Use
  Company Number: GB-WATSON-2014-00963

PATIENT
  Age: 66 Year
  Sex: Male
  Weight: 200 kg

DRUGS (2)
  1. SIMVASTATIN (UNKNOWN) [Suspect]
     Indication: GLUCOSE TOLERANCE IMPAIRED
     Dosage: 20 MG, DAILY
     Route: 048
     Dates: start: 20131116, end: 20131123
  2. SIMVASTATIN (UNKNOWN) [Suspect]
     Indication: HYPERCHOLESTEROLAEMIA
     Dosage: 80 MG, UNK
     Route: 065

REACTIONS (5)
  - Aphagia [Recovered/Resolved]
  - Constipation [Recovered/Resolved]
  - Headache [Recovered/Resolved]
  - Vomiting [Recovered/Resolved]
  - Nausea [Recovered/Resolved]
